FAERS Safety Report 15853884 (Version 2)
Quarter: 2019Q2

REPORT INFORMATION
  Report Type: Spontaneous
  Country: US (occurrence: US)
  Receive Date: 20190122
  Receipt Date: 20190613
  Transmission Date: 20190711
  Serious: No
  Sender: FDA-Public Use
  Company Number: US-PFIZER INC-2014216994

PATIENT
  Age: 58 Year
  Sex: Male

DRUGS (6)
  1. MORPHINE SULFATE. [Suspect]
     Active Substance: MORPHINE SULFATE
     Dosage: UNK
  2. AMOXICILLIN/CLAVULANATE POTASSIUM [Suspect]
     Active Substance: AMOXICILLIN\CLAVULANATE POTASSIUM
     Dosage: UNK
  3. AMOXICILLIN. [Suspect]
     Active Substance: AMOXICILLIN
     Dosage: UNK
  4. PHENERGAN WITH CODEINE ELIXIR (CHLOROFORM\CITRIC ACID MONOHYDRATE\CODEINE PHOSPHATE\IPECAC\PROMETHAZINE HYDROCHLORIDE\SODIUM CITRATE\SULFOGAIACOL) [Suspect]
     Active Substance: CHLOROFORM\CITRIC ACID MONOHYDRATE\CODEINE PHOSPHATE\IPECAC\PROMETHAZINE HYDROCHLORIDE\SODIUM CITRATE\SULFOGAIACOL
     Dosage: UNK
  5. AUGMENTIN [Suspect]
     Active Substance: AMOXICILLIN\CLAVULANATE POTASSIUM
     Dosage: UNK
  6. NITROGLYCERIN. [Suspect]
     Active Substance: NITROGLYCERIN
     Dosage: UNK

REACTIONS (1)
  - Drug hypersensitivity [Unknown]
